FAERS Safety Report 25085740 (Version 1)
Quarter: 2025Q1

REPORT INFORMATION
  Report Type: Spontaneous
  Country: SE (occurrence: SE)
  Receive Date: 20250317
  Receipt Date: 20250317
  Transmission Date: 20250409
  Serious: Yes (Other)
  Sender: MYLAN
  Company Number: None

PATIENT
  Age: 67 Year
  Sex: Male

DRUGS (56)
  1. AMLODIPINE [Suspect]
     Active Substance: AMLODIPINE BESYLATE
     Indication: Essential hypertension
  2. AMLODIPINE [Suspect]
     Active Substance: AMLODIPINE BESYLATE
     Route: 048
  3. AMLODIPINE [Suspect]
     Active Substance: AMLODIPINE BESYLATE
     Route: 048
  4. AMLODIPINE [Suspect]
     Active Substance: AMLODIPINE BESYLATE
  5. ATORVASTATIN [Concomitant]
     Active Substance: ATORVASTATIN
  6. ATORVASTATIN [Concomitant]
     Active Substance: ATORVASTATIN
     Route: 065
  7. ATORVASTATIN [Concomitant]
     Active Substance: ATORVASTATIN
     Route: 065
  8. ATORVASTATIN [Concomitant]
     Active Substance: ATORVASTATIN
  9. OXAZEPAM [Concomitant]
     Active Substance: OXAZEPAM
  10. OXAZEPAM [Concomitant]
     Active Substance: OXAZEPAM
     Route: 065
  11. OXAZEPAM [Concomitant]
     Active Substance: OXAZEPAM
     Route: 065
  12. OXAZEPAM [Concomitant]
     Active Substance: OXAZEPAM
  13. OLOPATADINE [Concomitant]
     Active Substance: OLOPATADINE
  14. OLOPATADINE [Concomitant]
     Active Substance: OLOPATADINE
     Route: 065
  15. OLOPATADINE [Concomitant]
     Active Substance: OLOPATADINE
     Route: 065
  16. OLOPATADINE [Concomitant]
     Active Substance: OLOPATADINE
  17. METFORMIN [Concomitant]
     Active Substance: METFORMIN HYDROCHLORIDE
  18. METFORMIN [Concomitant]
     Active Substance: METFORMIN HYDROCHLORIDE
     Route: 065
  19. METFORMIN [Concomitant]
     Active Substance: METFORMIN HYDROCHLORIDE
     Route: 065
  20. METFORMIN [Concomitant]
     Active Substance: METFORMIN HYDROCHLORIDE
  21. ATENOLOL [Concomitant]
     Active Substance: ATENOLOL
  22. ATENOLOL [Concomitant]
     Active Substance: ATENOLOL
     Route: 065
  23. ATENOLOL [Concomitant]
     Active Substance: ATENOLOL
     Route: 065
  24. ATENOLOL [Concomitant]
     Active Substance: ATENOLOL
  25. AMITRIPTYLINE [Concomitant]
     Active Substance: AMITRIPTYLINE
  26. AMITRIPTYLINE [Concomitant]
     Active Substance: AMITRIPTYLINE
     Route: 065
  27. AMITRIPTYLINE [Concomitant]
     Active Substance: AMITRIPTYLINE
     Route: 065
  28. AMITRIPTYLINE [Concomitant]
     Active Substance: AMITRIPTYLINE
  29. BRICANYL [Concomitant]
     Active Substance: TERBUTALINE SULFATE
  30. BRICANYL [Concomitant]
     Active Substance: TERBUTALINE SULFATE
     Route: 065
  31. BRICANYL [Concomitant]
     Active Substance: TERBUTALINE SULFATE
     Route: 065
  32. BRICANYL [Concomitant]
     Active Substance: TERBUTALINE SULFATE
  33. PULMICORT TURBUHALER [Concomitant]
     Active Substance: BUDESONIDE
  34. PULMICORT TURBUHALER [Concomitant]
     Active Substance: BUDESONIDE
     Route: 065
  35. PULMICORT TURBUHALER [Concomitant]
     Active Substance: BUDESONIDE
     Route: 065
  36. PULMICORT TURBUHALER [Concomitant]
     Active Substance: BUDESONIDE
  37. ESCITALOPRAM [Concomitant]
     Active Substance: ESCITALOPRAM OXALATE
  38. ESCITALOPRAM [Concomitant]
     Active Substance: ESCITALOPRAM OXALATE
     Route: 065
  39. ESCITALOPRAM [Concomitant]
     Active Substance: ESCITALOPRAM OXALATE
     Route: 065
  40. ESCITALOPRAM [Concomitant]
     Active Substance: ESCITALOPRAM OXALATE
  41. PREDNISOLONE [Concomitant]
     Active Substance: PREDNISOLONE
  42. PREDNISOLONE [Concomitant]
     Active Substance: PREDNISOLONE
     Route: 065
  43. PREDNISOLONE [Concomitant]
     Active Substance: PREDNISOLONE
     Route: 065
  44. PREDNISOLONE [Concomitant]
     Active Substance: PREDNISOLONE
  45. LOSARTAN [Concomitant]
     Active Substance: LOSARTAN
  46. LOSARTAN [Concomitant]
     Active Substance: LOSARTAN
     Route: 065
  47. LOSARTAN [Concomitant]
     Active Substance: LOSARTAN
     Route: 065
  48. LOSARTAN [Concomitant]
     Active Substance: LOSARTAN
  49. DYMISTA [Concomitant]
     Active Substance: AZELASTINE HYDROCHLORIDE\FLUTICASONE PROPIONATE
  50. DYMISTA [Concomitant]
     Active Substance: AZELASTINE HYDROCHLORIDE\FLUTICASONE PROPIONATE
     Route: 065
  51. DYMISTA [Concomitant]
     Active Substance: AZELASTINE HYDROCHLORIDE\FLUTICASONE PROPIONATE
     Route: 065
  52. DYMISTA [Concomitant]
     Active Substance: AZELASTINE HYDROCHLORIDE\FLUTICASONE PROPIONATE
  53. ACETAMINOPHEN\CODEINE PHOSPHATE [Concomitant]
     Active Substance: ACETAMINOPHEN\CODEINE PHOSPHATE
  54. ACETAMINOPHEN\CODEINE PHOSPHATE [Concomitant]
     Active Substance: ACETAMINOPHEN\CODEINE PHOSPHATE
     Route: 065
  55. ACETAMINOPHEN\CODEINE PHOSPHATE [Concomitant]
     Active Substance: ACETAMINOPHEN\CODEINE PHOSPHATE
     Route: 065
  56. ACETAMINOPHEN\CODEINE PHOSPHATE [Concomitant]
     Active Substance: ACETAMINOPHEN\CODEINE PHOSPHATE

REACTIONS (2)
  - Erectile dysfunction [Recovered/Resolved]
  - Dizziness [Recovered/Resolved]

NARRATIVE: CASE EVENT DATE: 20241201
